FAERS Safety Report 17435625 (Version 3)
Quarter: 2020Q1

REPORT INFORMATION
  Report Type: Spontaneous
  Country: CN (occurrence: CN)
  Receive Date: 20200219
  Receipt Date: 20200225
  Transmission Date: 20200409
  Serious: Yes (Death, Life-Threatening, Hospitalization, Other)
  Sender: FDA-Public Use
  Company Number: CN-PFIZER INC-2020064284

PATIENT
  Age: 76 Year
  Sex: Female

DRUGS (2)
  1. IRINOTECAN HCL [Suspect]
     Active Substance: IRINOTECAN HYDROCHLORIDE
     Indication: COLON CANCER
     Dosage: 240 MG, UNK (THROUGH EMBEDDED VENOUS TRANSFUSION PORT, AT THE FIRST DAY) 21 DAYS FOR ONE ROUND
     Route: 042
  2. TS-1 [Suspect]
     Active Substance: GIMERACIL\OTERACIL\TEGAFUR
     Indication: COLON CANCER
     Dosage: 80 MG, DAILY (BID,FROM DAY 1 TO DAY 14) 21 DAYS FOR ONE ROUND
     Route: 048

REACTIONS (3)
  - Bone marrow failure [Fatal]
  - Neurotoxicity [Fatal]
  - Diarrhoea [Fatal]
